FAERS Safety Report 16569573 (Version 2)
Quarter: 2019Q3

REPORT INFORMATION
  Report Type: Spontaneous
  Country: KR (occurrence: KR)
  Receive Date: 20190715
  Receipt Date: 20190718
  Transmission Date: 20191004
  Serious: Yes (Death, Hospitalization, Other)
  Sender: FDA-Public Use
  Company Number: KR-009507513-1906KOR001873

PATIENT
  Sex: Male

DRUGS (42)
  1. SUSPEN (ACETAMINOPHEN) [Concomitant]
     Dosage: QUANTITY 3, DAYS 4
     Dates: start: 20190411
  2. COUGH SYRUP (AMMONIUM CHLORIDE (+) CHLORPHENIRAMINE MALEATE (+) DEXTRO [Concomitant]
     Dosage: 20 MILLILITER, QUANTITY 2, DAYS 1
     Dates: start: 20190503
  3. STERILE WATER [Concomitant]
     Active Substance: WATER
     Dosage: 20 MILLILITER, QUANTITY 4, DAYS 10
     Dates: start: 20190430
  4. SODIUM CHLORIDE. [Concomitant]
     Active Substance: SODIUM CHLORIDE
     Dosage: QUANTITY 1, DAYS 2
     Dates: start: 20190502
  5. TAZOPERAN [Concomitant]
     Dosage: QUANTITY 1, DAYS 4
     Dates: start: 20190614
  6. COUGH SYRUP (AMMONIUM CHLORIDE (+) CHLORPHENIRAMINE MALEATE (+) DEXTRO [Concomitant]
     Dosage: 20 MILLILITER, QUANTITY AND DAYS REPORTED AS 312
     Dates: start: 20190504
  7. SODIUM CHLORIDE. [Concomitant]
     Active Substance: SODIUM CHLORIDE
     Dosage: QUANTITY 4, DAYS 10
     Dates: start: 20190430
  8. KEYTRUDA [Suspect]
     Active Substance: PEMBROLIZUMAB
     Indication: BLADDER CANCER
     Dosage: QUANTITY 2, DAYS 1
     Dates: start: 20190508, end: 20190508
  9. COUGH SYRUP (AMMONIUM CHLORIDE (+) CHLORPHENIRAMINE MALEATE (+) DEXTRO [Concomitant]
     Dosage: 20 MILLILITER, QUANTITY 2, DAYS 1
     Dates: start: 20190511
  10. STERILE WATER [Concomitant]
     Active Substance: WATER
     Dosage: 20 MILLILITER, QUANTITY 2, DAYS 2
     Dates: start: 20190429
  11. SODIUM CHLORIDE. [Concomitant]
     Active Substance: SODIUM CHLORIDE
     Dosage: QUANTITY 3, DAYS 1
     Dates: start: 20190428
  12. KEYTRUDA [Suspect]
     Active Substance: PEMBROLIZUMAB
     Dosage: QUANTITY 2, DAYS 2
     Dates: start: 20190603
  13. SUSPEN (ACETAMINOPHEN) [Concomitant]
     Dosage: QUANTITY 2, DAYS 1
     Dates: start: 20190511
  14. CODEINE PHOSPHATE [Concomitant]
     Active Substance: CODEINE PHOSPHATE
     Dosage: QUANTITY 3, DAYS 1
     Dates: start: 20190624
  15. RINO EBASTEL [Concomitant]
     Active Substance: EBASTINE\PSEUDOEPHEDRINE HYDROCHLORIDE
     Dosage: QUANTITY 1, DAYS 2
     Dates: start: 20190501
  16. SODIUM CHLORIDE. [Concomitant]
     Active Substance: SODIUM CHLORIDE
     Dosage: QUANTITY 2, DAYS 4
     Dates: start: 20190613
  17. TAZOPERAN [Concomitant]
     Dosage: QUANTITY 3, DAYS 8
     Dates: start: 20190613
  18. TRIAXONE [Concomitant]
     Dosage: 2 GRAM, QUANTITY 1, DAYS 1
     Dates: start: 20190428
  19. TRIAXONE [Concomitant]
     Dosage: QUANTITY 1, DAYS 1
     Dates: start: 20190515
  20. SUSPEN (ACETAMINOPHEN) [Concomitant]
     Dosage: QUANTITY 1, DAYS 2
     Dates: start: 20190508
  21. KALIMATE [Concomitant]
     Active Substance: CALCIUM POLYSTYRENE SULFONATE
     Dosage: QUANTITY 3, DAYS 2
     Dates: start: 20190426
  22. KALIMATE [Concomitant]
     Active Substance: CALCIUM POLYSTYRENE SULFONATE
     Dosage: QUANTITY 1, DAYS 1
     Dates: start: 20190428
  23. MACPERAN [Concomitant]
     Active Substance: METOCLOPRAMIDE HYDROCHLORIDE
     Dosage: QUANTITY 6, DAYS 5
     Dates: start: 20190511
  24. SODIUM CHLORIDE. [Concomitant]
     Active Substance: SODIUM CHLORIDE
     Dosage: QUANTITY 1, DAYS 3
     Dates: start: 20190428
  25. SODIUM CHLORIDE. [Concomitant]
     Active Substance: SODIUM CHLORIDE
     Dosage: QUANTITY 1, DAYS 3
     Dates: start: 20190426
  26. SODIUM CHLORIDE. [Concomitant]
     Active Substance: SODIUM CHLORIDE
     Dosage: QUANTITY 1, DAYS 4
     Dates: start: 20190612
  27. CODEINE PHOSPHATE [Concomitant]
     Active Substance: CODEINE PHOSPHATE
     Dosage: QUANTITY 3, DAYS 9
     Dates: start: 20190507
  28. RINO EBASTEL [Concomitant]
     Active Substance: EBASTINE\PSEUDOEPHEDRINE HYDROCHLORIDE
     Dosage: QUANTITY AND DAYS REPORTED AS 213
     Dates: start: 20190503
  29. STERILE WATER [Concomitant]
     Active Substance: WATER
     Dosage: 20 MILLILITER, QUANTITY 1, DAYS 7
     Dates: start: 20190428
  30. SODIUM CHLORIDE. [Concomitant]
     Active Substance: SODIUM CHLORIDE
     Dosage: QUANTITY 6, DAYS 1
     Dates: start: 20190620
  31. TAZOPERAN [Concomitant]
     Dosage: 4.5 GRAM, QUANTITY 2, DAYS 2
     Dates: start: 20190429
  32. TAZOPERAN [Concomitant]
     Dosage: 4.5 GRAM, QUANTITY 4, DAYS 10
     Dates: start: 20190430
  33. CODEINE PHOSPHATE [Concomitant]
     Active Substance: CODEINE PHOSPHATE
     Dosage: QUANTITY 1, DAYS 1
     Dates: start: 20190511
  34. LIDOCAINE. [Concomitant]
     Active Substance: LIDOCAINE
     Dosage: QUANTITY 1, DAYS 1
     Dates: start: 20190502
  35. SODIUM CHLORIDE. [Concomitant]
     Active Substance: SODIUM CHLORIDE
     Dosage: QUANTITY 2, DAYS 4
     Dates: start: 20190428
  36. SODIUM CHLORIDE. [Concomitant]
     Active Substance: SODIUM CHLORIDE
     Dosage: QUANTITY 4, DAYS 1
     Dates: start: 20190623
  37. TAZOPERAN [Concomitant]
     Dosage: 4.5 GRAM, QUANTITY 1, DAYS 2
     Dates: start: 20190428
  38. TAZOPERAN [Concomitant]
     Dosage: QUANTITY 1, DAYS 3
     Dates: start: 20190516
  39. KEYTRUDA [Suspect]
     Active Substance: PEMBROLIZUMAB
     Dosage: QUANTITY 2, DAYS 1
     Dates: start: 20190624
  40. SUSPEN (ACETAMINOPHEN) [Concomitant]
     Dosage: QUANTITY 4, DAYS 8
     Dates: start: 20190508
  41. MACPERAN [Concomitant]
     Active Substance: METOCLOPRAMIDE HYDROCHLORIDE
     Dosage: QUANTITY 4, DAYS 1
     Dates: start: 20190510
  42. MACPERAN [Concomitant]
     Active Substance: METOCLOPRAMIDE HYDROCHLORIDE
     Dosage: QUANTITY 2, DAYS 1
     Dates: start: 20190511

REACTIONS (6)
  - Adverse event [Unknown]
  - Haemodialysis [Unknown]
  - Oxygen therapy [Unknown]
  - Inappropriate schedule of product administration [Unknown]
  - Malignant neoplasm progression [Fatal]
  - Adverse event [Unknown]

NARRATIVE: CASE EVENT DATE: 2019
